FAERS Safety Report 18632815 (Version 1)
Quarter: 2020Q4

REPORT INFORMATION
  Report Type: Spontaneous
  Country: DE (occurrence: DE)
  Receive Date: 20201218
  Receipt Date: 20201218
  Transmission Date: 20210114
  Serious: Yes (Hospitalization, Other)
  Sender: FDA-Public Use
  Company Number: NVSC2020DE326465

PATIENT
  Age: 15 Year
  Sex: Female
  Weight: 39 kg

DRUGS (6)
  1. LEVOTHYROXINE. [Suspect]
     Active Substance: LEVOTHYROXINE
     Indication: SUICIDAL IDEATION
     Dosage: UNK (FILM-COATED TABLET)
     Route: 048
     Dates: start: 20200619, end: 20200619
  2. GUANFACINE. [Suspect]
     Active Substance: GUANFACINE
     Indication: SUICIDAL IDEATION
     Dosage: UNK
     Route: 048
     Dates: start: 20200619, end: 20200619
  3. RAMIPRIL. [Suspect]
     Active Substance: RAMIPRIL
     Indication: SUICIDAL IDEATION
     Dosage: UNK (FILM-COATED TABLET)
     Route: 048
     Dates: start: 20200619, end: 20200619
  4. ZONISAMIDE. [Suspect]
     Active Substance: ZONISAMIDE
     Indication: SUICIDAL IDEATION
     Dosage: UNK
     Route: 048
     Dates: start: 20200619, end: 20200619
  5. TORASEMIDE [Suspect]
     Active Substance: TORSEMIDE
     Indication: SUICIDAL IDEATION
     Dosage: UNK (FILM-COATED TABLET)
     Route: 048
     Dates: start: 20200619, end: 20200619
  6. ATORVASTATIN [Suspect]
     Active Substance: ATORVASTATIN
     Indication: SUICIDAL IDEATION
     Dosage: UNK
     Route: 048
     Dates: start: 20200619, end: 20200619

REACTIONS (10)
  - General physical health deterioration [Unknown]
  - Intentional overdose [Unknown]
  - Depressed level of consciousness [Unknown]
  - Hypotension [Unknown]
  - Nausea [Unknown]
  - Vomiting [Unknown]
  - Arrhythmia [Unknown]
  - Lactic acidosis [Unknown]
  - Hypothermia [Unknown]
  - Toxicity to various agents [Unknown]

NARRATIVE: CASE EVENT DATE: 20200619
